FAERS Safety Report 22125407 (Version 1)
Quarter: 2023Q1

REPORT INFORMATION
  Report Type: Spontaneous
  Country: DK (occurrence: DK)
  Receive Date: 20230322
  Receipt Date: 20230322
  Transmission Date: 20230417
  Serious: Yes (Hospitalization, Other)
  Sender: FDA-Public Use
  Company Number: None

PATIENT
  Age: 72 Year
  Sex: Male

DRUGS (1)
  1. JARDIANCE [Suspect]
     Active Substance: EMPAGLIFLOZIN
     Indication: Type 2 diabetes mellitus
     Route: 048
     Dates: start: 20201219, end: 20230313

REACTIONS (6)
  - Pollakiuria [Unknown]
  - Pyrexia [Unknown]
  - Dysuria [Unknown]
  - Fatigue [Unknown]
  - Diarrhoea [Unknown]
  - Urosepsis [Recovering/Resolving]

NARRATIVE: CASE EVENT DATE: 20230310
